FAERS Safety Report 17265705 (Version 1)
Quarter: 2020Q1

REPORT INFORMATION
  Report Type: Spontaneous
  Country: US (occurrence: US)
  Receive Date: 20200114
  Receipt Date: 20200114
  Transmission Date: 20200409
  Serious: Yes (Other)
  Sender: FDA-Public Use
  Company Number: US-GILEAD-2020-0446134

PATIENT
  Sex: Female

DRUGS (1)
  1. HARVONI [Suspect]
     Active Substance: LEDIPASVIR\SOFOSBUVIR
     Indication: HEPATITIS C
     Dosage: UNK
     Route: 065
     Dates: start: 201509, end: 201512

REACTIONS (29)
  - Encephalopathy [Unknown]
  - Hypersensitivity [Unknown]
  - Peripheral sensory neuropathy [Unknown]
  - Blood sodium decreased [Unknown]
  - Ammonia increased [Unknown]
  - B-lymphocyte count decreased [Unknown]
  - Rash [Not Recovered/Not Resolved]
  - Neuropathy peripheral [Unknown]
  - Diplopia [Unknown]
  - Malaise [Unknown]
  - Pruritus [Not Recovered/Not Resolved]
  - Protein total increased [Unknown]
  - Confusional state [Unknown]
  - Headache [Unknown]
  - Deafness [Unknown]
  - Diabetes mellitus [Unknown]
  - Blood cholesterol increased [Not Recovered/Not Resolved]
  - Hepato-lenticular degeneration [Unknown]
  - Immune system disorder [Unknown]
  - Hepatitis C virus test positive [Unknown]
  - Cataract [Unknown]
  - Tinnitus [Unknown]
  - Liver function test increased [Not Recovered/Not Resolved]
  - Blood glucose increased [Unknown]
  - Blood pressure increased [Unknown]
  - White blood cell count increased [Unknown]
  - Vitreous floaters [Unknown]
  - Muscle spasms [Unknown]
  - Diarrhoea [Unknown]
